FAERS Safety Report 6045233-6 (Version None)
Quarter: 2009Q1

REPORT INFORMATION
  Report Type: 
  Country: None (occurrence: None)
  Receive Date: 20090121
  Receipt Date: 20090113
  Transmission Date: 20090719
  Serious: Yes (Hospitalization)
  Sender: FDA-Public Use
  Company Number: US-BAYER-200910824NA

PATIENT
  Age: 40 Year
  Sex: Female

DRUGS (5)
  1. AVELOX [Suspect]
     Indication: PNEUMONIA
  2. IBUPROFEN TABLETS [Concomitant]
  3. ALBUTEROL [Concomitant]
  4. COUGH SYRUP [Concomitant]
  5. LEVOTHYROXINE SODIUM [Concomitant]

REACTIONS (1)
  - RESPIRATORY FAILURE [None]
